FAERS Safety Report 5402310-8 (Version None)
Quarter: 2007Q3

REPORT INFORMATION
  Report Type: 
  Country: None (occurrence: None)
  Receive Date: 20070801
  Receipt Date: 20070725
  Transmission Date: 20080115
  Serious: Yes (Hospitalization)
  Sender: FDA-Public Use
  Company Number: FR-AVENTIS-200716807GDDC

PATIENT
  Age: 77 Year
  Sex: Male

DRUGS (13)
  1. MINIRIN [Suspect]
     Route: 048
     Dates: start: 20070301
  2. ALLOPURINOL [Suspect]
     Route: 048
     Dates: start: 20070301
  3. AVODART [Suspect]
     Dates: start: 20070101
  4. ARICEPT [Suspect]
     Route: 048
     Dates: start: 20070401
  5. INSULIN HUMAN [Concomitant]
  6. GLUCOPHAGE [Concomitant]
  7. AMARYL [Concomitant]
  8. LIPANTHYL [Concomitant]
  9. COAPROVEL [Concomitant]
  10. MONO-TILDIEM [Concomitant]
  11. ASPEGIC 1000 [Concomitant]
  12. UVEDOSE [Concomitant]
  13. STILNOX                            /00914901/ [Concomitant]

REACTIONS (1)
  - ACUTE FEBRILE NEUTROPHILIC DERMATOSIS [None]
